FAERS Safety Report 6849781-8 (Version None)
Quarter: 2010Q3

REPORT INFORMATION
  Report Type: 
  Country: None (occurrence: None)
  Receive Date: 20100716
  Receipt Date: 20071008
  Transmission Date: 20110219
  Serious: No
  Sender: FDA-Public Use
  Company Number: US-PFIZER INC-2007084666

PATIENT
  Sex: Female
  Weight: 60.9 kg

DRUGS (3)
  1. CHANTIX [Suspect]
     Indication: SMOKING CESSATION THERAPY
     Route: 048
     Dates: start: 20070901
  2. MESALAZINE [Concomitant]
  3. AVIANE-28 [Concomitant]

REACTIONS (5)
  - INSOMNIA [None]
  - PALPITATIONS [None]
  - PRURITUS [None]
  - RASH [None]
  - THINKING ABNORMAL [None]
